FAERS Safety Report 9559479 (Version 1)
Quarter: 2013Q3

REPORT INFORMATION
  Report Type: Spontaneous
  Country: FR (occurrence: FR)
  Receive Date: 20130927
  Receipt Date: 20130927
  Transmission Date: 20140515
  Serious: Yes (Hospitalization)
  Sender: FDA-Public Use
  Company Number: FR-JNJFOC-20130914716

PATIENT
  Age: 87 Year
  Sex: Female

DRUGS (7)
  1. RISPERDALORO [Suspect]
     Indication: DEPRESSION
     Dosage: ONCE TO TWICE
     Route: 048
     Dates: start: 20080225, end: 20080305
  2. TRIFLUCAN [Suspect]
     Indication: ORAL FUNGAL INFECTION
     Route: 048
     Dates: start: 200803, end: 20080310
  3. ZYPREXA [Suspect]
     Indication: DEPRESSION
     Route: 048
     Dates: start: 20080304, end: 20080308
  4. SEROPRAM [Suspect]
     Indication: DEPRESSION
     Route: 042
     Dates: start: 20080305, end: 20080308
  5. SEROPRAM [Suspect]
     Indication: DEPRESSION
     Route: 042
     Dates: start: 20080225, end: 20080304
  6. ROCEPHIN [Suspect]
     Indication: URINARY TRACT INFECTION
     Route: 042
     Dates: start: 20080225, end: 20080307
  7. LOVENOX [Suspect]
     Indication: ARRHYTHMIA
     Dosage: 4000 IU ANTI - XA/0.4ML
     Route: 058
     Dates: start: 20080226, end: 20080310

REACTIONS (1)
  - Hepatitis toxic [Recovering/Resolving]
